FAERS Safety Report 23428898 (Version 1)
Quarter: 2024Q1

REPORT INFORMATION
  Report Type: Spontaneous
  Country: US (occurrence: US)
  Receive Date: 20240122
  Receipt Date: 20240122
  Transmission Date: 20240409
  Serious: Yes (Death, Other)
  Sender: FDA-Public Use
  Company Number: US-AMNEAL PHARMACEUTICALS-2024-AMRX-00104

PATIENT
  Age: 87 Year
  Sex: Female

DRUGS (2)
  1. RYTARY [Suspect]
     Active Substance: CARBIDOPA\LEVODOPA
     Indication: Product used for unknown indication
     Dosage: 3 (36.25/145 MG) CAPSULES, 3 /DAY
     Route: 048
  2. RYTARY [Suspect]
     Active Substance: CARBIDOPA\LEVODOPA
     Dosage: 3 (36.25/145 MG) CAPSULES, 4 /DAY
     Route: 048

REACTIONS (3)
  - Pulmonary oedema [Fatal]
  - Post procedural complication [Fatal]
  - Product use issue [Unknown]

NARRATIVE: CASE EVENT DATE: 20230410
